FAERS Safety Report 11614786 (Version 1)
Quarter: 2015Q4

REPORT INFORMATION
  Report Type: Spontaneous
  Country: AU (occurrence: None)
  Receive Date: 20151007
  Receipt Date: 20151007
  Transmission Date: 20160304
  Serious: Yes (Other)
  Sender: FDA-Public Use
  Company Number: FK201504662

PATIENT
  Age: 59 Year
  Sex: Female

DRUGS (2)
  1. ZOLEDRONIC ACID [Suspect]
     Active Substance: ZOLEDRONIC ACID
     Indication: PLASMA CELL MYELOMA
  2. LENALIDOMIDE [Concomitant]
     Active Substance: LENALIDOMIDE

REACTIONS (7)
  - Plasma cell myeloma [None]
  - Pneumonia [None]
  - Haemodialysis [None]
  - Herpes zoster disseminated [None]
  - Acute kidney injury [None]
  - Tubulointerstitial nephritis [None]
  - Respiratory failure [None]
